FAERS Safety Report 13399918 (Version 12)
Quarter: 2018Q3

REPORT INFORMATION
  Report Type: Spontaneous
  Country: CA (occurrence: CA)
  Receive Date: 20170404
  Receipt Date: 20180917
  Transmission Date: 20181010
  Serious: Yes (Other)
  Sender: FDA-Public Use
  Company Number: CA-ROCHE-1537949

PATIENT
  Age: 31 Year
  Sex: Male

DRUGS (18)
  1. XOLAIR [Suspect]
     Active Substance: OMALIZUMAB
     Indication: ASTHMA
     Route: 058
     Dates: start: 20111125
  2. XOLAIR [Suspect]
     Active Substance: OMALIZUMAB
     Route: 058
     Dates: start: 20170619
  3. XOLAIR [Suspect]
     Active Substance: OMALIZUMAB
     Route: 058
  4. SYMBICORT [Concomitant]
     Active Substance: BUDESONIDE\FORMOTEROL FUMARATE DIHYDRATE
     Indication: PRODUCT USED FOR UNKNOWN INDICATION
     Route: 065
  5. XOLAIR [Suspect]
     Active Substance: OMALIZUMAB
     Dosage: UNK
     Route: 058
     Dates: start: 20171127
  6. SYMBICORT [Concomitant]
     Active Substance: BUDESONIDE\FORMOTEROL FUMARATE DIHYDRATE
     Indication: ASTHMA
     Dosage: 7?8 INHALATIONS ONCE PER DAY, AS TREATMENT
     Route: 055
  7. XOLAIR [Suspect]
     Active Substance: OMALIZUMAB
     Route: 058
     Dates: start: 20170316
  8. XOLAIR [Suspect]
     Active Substance: OMALIZUMAB
     Route: 058
     Dates: start: 20170911
  9. XOLAIR [Suspect]
     Active Substance: OMALIZUMAB
     Route: 058
     Dates: start: 20170925
  10. XOLAIR [Suspect]
     Active Substance: OMALIZUMAB
     Dosage: UNK
     Route: 058
     Dates: start: 20180212
  11. XOLAIR [Suspect]
     Active Substance: OMALIZUMAB
     Dosage: UNK
     Route: 058
     Dates: start: 20180319
  12. XOLAIR [Suspect]
     Active Substance: OMALIZUMAB
     Route: 058
     Dates: start: 20170329
  13. XOLAIR [Suspect]
     Active Substance: OMALIZUMAB
     Route: 058
     Dates: start: 20170814
  14. XOLAIR [Suspect]
     Active Substance: OMALIZUMAB
     Route: 058
     Dates: start: 20171016
  15. SINGULAIR [Concomitant]
     Active Substance: MONTELUKAST SODIUM
     Indication: PRODUCT USED FOR UNKNOWN INDICATION
     Route: 065
  16. XOLAIR [Suspect]
     Active Substance: OMALIZUMAB
     Route: 058
  17. XOLAIR [Suspect]
     Active Substance: OMALIZUMAB
     Route: 058
     Dates: start: 20171030
  18. XOLAIR [Suspect]
     Active Substance: OMALIZUMAB
     Dosage: UNK
     Route: 058
     Dates: start: 20180305

REACTIONS (18)
  - Blood pressure systolic increased [Unknown]
  - Middle insomnia [Unknown]
  - Upper respiratory tract infection [Unknown]
  - Otorrhoea [Unknown]
  - Wheezing [Unknown]
  - Sputum discoloured [Not Recovered/Not Resolved]
  - Injection site pain [Unknown]
  - Asthma [Recovering/Resolving]
  - Ear discomfort [Unknown]
  - Dyspnoea [Recovering/Resolving]
  - Hypersensitivity [Recovered/Resolved]
  - Breath sounds abnormal [Recovering/Resolving]
  - Productive cough [Unknown]
  - Cough [Not Recovered/Not Resolved]
  - Lung disorder [Unknown]
  - Nasal congestion [Recovering/Resolving]
  - Sensitivity to weather change [Unknown]
  - Ligament rupture [Unknown]

NARRATIVE: CASE EVENT DATE: 20140705
